FAERS Safety Report 4706465-X (Version None)
Quarter: 2005Q3

REPORT INFORMATION
  Report Type: 
  Country: None (occurrence: None)
  Receive Date: 20050705
  Receipt Date: 20041112
  Transmission Date: 20060218
  Serious: Yes (Death, Hospitalization)
  Sender: FDA-Public Use
  Company Number: 2004-0290

PATIENT
  Age: 77 Year
  Sex: Male

DRUGS (11)
  1. RANIPLEX [Suspect]
     Indication: ABDOMINAL PAIN UPPER
     Dosage: 150MG PER DAY
     Route: 048
     Dates: start: 20041020, end: 20041023
  2. DETICENE [Suspect]
     Indication: CHOROID MELANOMA
     Dosage: 1UNIT PER DAY
     Route: 042
     Dates: start: 20041013, end: 20041017
  3. FOTEMUSTINE [Suspect]
     Indication: CHOROID MELANOMA
     Dosage: 1UNIT WEEKLY
     Route: 042
     Dates: start: 20040928, end: 20041005
  4. ONDANSETRON [Concomitant]
     Route: 048
     Dates: start: 20040101, end: 20040101
  5. VOGALENE [Concomitant]
     Route: 048
  6. MEDIATENSYL [Concomitant]
     Route: 048
  7. OXAZEPAM [Concomitant]
     Route: 048
  8. XANAX [Concomitant]
  9. ATARAX [Concomitant]
     Route: 048
  10. FORLAX [Concomitant]
     Route: 048
  11. OMEPRAZOLE [Concomitant]
     Route: 048

REACTIONS (3)
  - DEATH [None]
  - PANCYTOPENIA [None]
  - THROMBOCYTOPENIA [None]
